FAERS Safety Report 12274855 (Version 1)
Quarter: 2016Q2

REPORT INFORMATION
  Report Type: Spontaneous
  Country: US (occurrence: US)
  Receive Date: 20160415
  Receipt Date: 20160415
  Transmission Date: 20160815
  Serious: No
  Sender: FDA-Public Use
  Company Number: US-ALLERGAN-1625183US

PATIENT
  Sex: Female

DRUGS (2)
  1. LATISSE [Suspect]
     Active Substance: BIMATOPROST
     Indication: GROWTH OF EYELASHES
     Dosage: UNK
     Dates: start: 201412
  2. LATISSE [Suspect]
     Active Substance: BIMATOPROST
     Dosage: 2-3 TIMES PER WEEK
     Dates: start: 201507

REACTIONS (2)
  - Madarosis [Not Recovered/Not Resolved]
  - Inappropriate schedule of drug administration [Unknown]
